FAERS Safety Report 9367338 (Version 1)
Quarter: 2013Q2

REPORT INFORMATION
  Report Type: Spontaneous
  Country: US (occurrence: US)
  Receive Date: 20130625
  Receipt Date: 20130625
  Transmission Date: 20140414
  Serious: No
  Sender: FDA-Public Use
  Company Number: US-TEVA-414817USA

PATIENT
  Age: 68 Year
  Sex: Female
  Weight: 79.45 kg

DRUGS (1)
  1. NUVIGIL [Suspect]
     Indication: SOMNOLENCE
     Dates: start: 20130621

REACTIONS (2)
  - Drug ineffective [Unknown]
  - Off label use [Unknown]
